FAERS Safety Report 21621441 (Version 1)
Quarter: 2022Q4

REPORT INFORMATION
  Report Type: Spontaneous
  Country: TW (occurrence: TW)
  Receive Date: 20221121
  Receipt Date: 20221121
  Transmission Date: 20230113
  Serious: Yes (Other)
  Sender: FDA-Public Use
  Company Number: TW-PFIZER INC-PV202200104921

PATIENT
  Age: 8 Year
  Sex: Male

DRUGS (6)
  1. EPIRUBICIN HYDROCHLORIDE [Suspect]
     Active Substance: EPIRUBICIN HYDROCHLORIDE
     Indication: Precursor T-lymphoblastic lymphoma/leukaemia stage III
     Dosage: 20 MG/M2, (1-HR IV INFUSION, DAYS 8, 15, 22, 29)
     Route: 042
  2. EPIRUBICIN HYDROCHLORIDE [Suspect]
     Active Substance: EPIRUBICIN HYDROCHLORIDE
     Dosage: 30 MG/M2, (1-HR IV INFUSION, DAYS 8, 15, 22, 29)
     Route: 042
  3. VINCRISTINE SULFATE [Suspect]
     Active Substance: VINCRISTINE SULFATE
     Indication: Precursor T-lymphoblastic lymphoma/leukaemia stage III
     Dosage: 1.5 MG/M2 (MAX 2MG), DAYS 8, 15, 22, 29)
     Route: 040
  4. PREDNISOLONE [Suspect]
     Active Substance: PREDNISOLONE
     Indication: Precursor T-lymphoblastic lymphoma/leukaemia stage III
     Dosage: 60 MG/M2, (DAYS 1-28, THEN TAPER OVER 3X3 DAYS)
     Route: 048
  5. ASPARAGINASE [Suspect]
     Active Substance: ASPARAGINASE
     Indication: Precursor T-lymphoblastic lymphoma/leukaemia stage III
     Dosage: 5000 IU/M2, (DAYS 12,15,18,21,24,27,30,33)
     Route: 030
  6. ASPARAGINASE [Suspect]
     Active Substance: ASPARAGINASE
     Dosage: 5000 IU/M2, (DAYS 8, 11, 15, 18)
     Route: 030

REACTIONS (1)
  - Haemolytic uraemic syndrome [Recovered/Resolved]
